FAERS Safety Report 5698519-9 (Version None)
Quarter: 2008Q2

REPORT INFORMATION
  Report Type: 
  Country: None (occurrence: None)
  Receive Date: 20080408
  Receipt Date: 20060707
  Transmission Date: 20081010
  Serious: No
  Sender: FDA-Public Use
  Company Number: US-BAYER-US-2006-018540

PATIENT
  Age: 52 Year
  Sex: Female
  Weight: 58 kg

DRUGS (1)
  1. CLIMARA [Suspect]
     Indication: RAYNAUD'S PHENOMENON
     Route: 062
     Dates: start: 20060601, end: 20060706

REACTIONS (1)
  - PRURITUS [None]
